FAERS Safety Report 24021896 (Version 3)
Quarter: 2024Q3

REPORT INFORMATION
  Report Type: Spontaneous
  Country: AU (occurrence: AU)
  Receive Date: 20240627
  Receipt Date: 20240710
  Transmission Date: 20241017
  Serious: No
  Sender: ROCHE
  Company Number: AU-ROCHE-3530740

PATIENT
  Age: 86 Year
  Sex: Female

DRUGS (1)
  1. VABYSMO [Suspect]
     Active Substance: FARICIMAB\FARICIMAB-SVOA
     Indication: Product used for unknown indication
     Dosage: LEFT EYE?ON 28/JUN/2023 RECEIVED SECOND INJECTION.
     Route: 050
     Dates: start: 20230517

REACTIONS (4)
  - Eye inflammation [Unknown]
  - Pain in jaw [Unknown]
  - Pain of skin [Unknown]
  - Malaise [Unknown]
